FAERS Safety Report 12518590 (Version 4)
Quarter: 2017Q4

REPORT INFORMATION
  Report Type: Spontaneous
  Country: US (occurrence: US)
  Receive Date: 20160630
  Receipt Date: 20171128
  Transmission Date: 20180320
  Serious: Yes (Other)
  Sender: FDA-Public Use
  Company Number: US-ASTRAZENECA-2016SE55678

PATIENT
  Age: 54 Year
  Sex: Male
  Weight: 65.8 kg

DRUGS (7)
  1. SYMBICORT [Suspect]
     Active Substance: BUDESONIDE\FORMOTEROL FUMARATE DIHYDRATE
     Indication: CHRONIC OBSTRUCTIVE PULMONARY DISEASE
     Dosage: 160/4.5 2 PUFFS TWICE DAILY
     Route: 055
     Dates: start: 201504
  2. VIMVAT [Concomitant]
     Indication: EPILEPSY
  3. VENTOLIN [Concomitant]
     Active Substance: ALBUTEROL SULFATE
     Dosage: AS REQUIRED
  4. DILANTIN [Concomitant]
     Active Substance: PHENYTOIN
  5. SYNTHROID [Concomitant]
     Active Substance: LEVOTHYROXINE SODIUM
     Indication: THYROID DISORDER
  6. TUDORZA PRESSAIR [Suspect]
     Active Substance: ACLIDINIUM BROMIDE
     Indication: CHRONIC OBSTRUCTIVE PULMONARY DISEASE
     Dosage: 400MCG, ONE PUFF TWICE DAILY
     Route: 055
     Dates: start: 201504
  7. DEPAKOTE [Concomitant]
     Active Substance: DIVALPROEX SODIUM
     Indication: EPILEPSY

REACTIONS (10)
  - Wrong technique in device usage process [Unknown]
  - Device malfunction [Unknown]
  - Drug dose omission [Unknown]
  - Dyspnoea [Unknown]
  - Eating disorder [Unknown]
  - Underweight [Unknown]
  - Movement disorder [Unknown]
  - Neoplasm malignant [Unknown]
  - Intentional product misuse [Unknown]
  - Weight decreased [Unknown]

NARRATIVE: CASE EVENT DATE: 2015
